FAERS Safety Report 9856945 (Version 2)
Quarter: 2014Q1

REPORT INFORMATION
  Report Type: Spontaneous
  Country: DE (occurrence: DE)
  Receive Date: 20140130
  Receipt Date: 20140206
  Transmission Date: 20141002
  Serious: Yes (Other)
  Sender: FDA-Public Use
  Company Number: DE-PFIZER INC-2014026037

PATIENT
  Age: 93 Year
  Sex: Female

DRUGS (4)
  1. DELIX [Suspect]
     Indication: HYPERTENSION
     Dosage: 2.5 MG, DAILY
     Route: 048
     Dates: start: 20131219, end: 20131224
  2. ASS [Concomitant]
     Indication: PLATELET AGGREGATION INHIBITION
  3. METOPROLOL SUCCINATE [Concomitant]
     Indication: HYPERTENSION
  4. PERINDOPRIL ERBUMINE [Concomitant]
     Indication: HYPERTENSION
     Dosage: UNK
     Dates: end: 20131218

REACTIONS (4)
  - Erythema [Recovered/Resolved]
  - Local swelling [Recovered/Resolved]
  - Movement disorder [Recovered/Resolved]
  - Pain in extremity [Recovered/Resolved]
